FAERS Safety Report 19067441 (Version 3)
Quarter: 2021Q3

REPORT INFORMATION
  Report Type: Report from Study
  Country: US (occurrence: US)
  Receive Date: 20210329
  Receipt Date: 20210806
  Transmission Date: 20211014
  Serious: No
  Sender: FDA-Public Use
  Company Number: US-TAKEDA-2021TUS018086

PATIENT
  Sex: Female
  Weight: 72 kg

DRUGS (14)
  1. HUMAN NORMAL IMMUNOGLOBULIN; LIQUID [Suspect]
     Active Substance: HUMAN IMMUNOGLOBULIN G
     Indication: DERMATOMYOSITIS
     Dosage: 15 GRAM, Q2WEEKS
     Route: 058
     Dates: start: 20210216
  2. LIDOCAINE. [Concomitant]
     Active Substance: LIDOCAINE
  3. VITAMIN D3 [Concomitant]
     Active Substance: CHOLECALCIFEROL
  4. HYDROXYCHLOROQUINE [Concomitant]
     Active Substance: HYDROXYCHLOROQUINE
  5. VITAMIN B?6 [Concomitant]
     Active Substance: PYRIDOXINE
  6. EPINEPHRINE. [Concomitant]
     Active Substance: EPINEPHRINE
  7. SYNTHROID [Concomitant]
     Active Substance: LEVOTHYROXINE SODIUM
  8. HUMAN NORMAL IMMUNOGLOBULIN; LIQUID [Suspect]
     Active Substance: HUMAN IMMUNOGLOBULIN G
     Dosage: 15 GRAM, 3/WEEK
     Route: 058
     Dates: start: 20210216
  9. XELJANZ XR [Concomitant]
     Active Substance: TOFACITINIB CITRATE
  10. DOXYCYCLINE. [Concomitant]
     Active Substance: DOXYCYCLINE
  11. DIPHENHYDRAMINE. [Concomitant]
     Active Substance: DIPHENHYDRAMINE
  12. ACETAMINOPHEN. [Concomitant]
     Active Substance: ACETAMINOPHEN
  13. KEYTRUDA [Concomitant]
     Active Substance: PEMBROLIZUMAB
  14. PANTOPRAZOLE [Concomitant]
     Active Substance: PANTOPRAZOLE

REACTIONS (4)
  - Off label use [Unknown]
  - Headache [Unknown]
  - Product dose omission issue [Unknown]
  - Pyrexia [Unknown]
